FAERS Safety Report 10222512 (Version 3)
Quarter: 2014Q2

REPORT INFORMATION
  Report Type: Report from Study
  Country: KR (occurrence: KR)
  Receive Date: 20140606
  Receipt Date: 20140630
  Transmission Date: 20141212
  Serious: Yes (Hospitalization)
  Sender: FDA-Public Use
  Company Number: KR-BAYER-2014-057473

PATIENT
  Age: 47 Year
  Sex: Male
  Weight: 60.5 kg

DRUGS (25)
  1. NEXAVAR [Suspect]
     Indication: HEPATOCELLULAR CARCINOMA
     Dosage: DAILY DOSE 800 MG
     Route: 048
     Dates: start: 20140415, end: 2014
  2. NEXAVAR [Suspect]
     Indication: HEPATOCELLULAR CARCINOMA
     Dosage: 600 MG, DAILY
     Route: 048
     Dates: start: 20140512, end: 20140525
  3. BARACLUDE [Concomitant]
     Dosage: DAILY DOSE 0.5 MG
     Dates: start: 20130528
  4. URSA [Concomitant]
     Dosage: DAILY DOSE 200 MG
     Dates: start: 20131218, end: 20140527
  5. URSA [Concomitant]
     Dosage: DAILY DOSE 200 MG
     Dates: start: 20140529
  6. CENTRUM SILVER [Concomitant]
     Dosage: DAILY DOSE 1 TABLET
     Dates: start: 20131219
  7. CENTRUM SILVER [Concomitant]
     Dosage: 1 TAB
     Dates: start: 20140529
  8. NOVORAPID [Concomitant]
     Dosage: DAILY DOSE 42 IU
     Dates: start: 20140218, end: 20140418
  9. NOVORAPID [Concomitant]
     Dosage: DAILY DOSE 18 IU
     Dates: start: 20140419, end: 20140422
  10. LEVEMIR [Concomitant]
     Dosage: DAILY DOSE 14 IU
     Dates: start: 20140218, end: 20140418
  11. LEVEMIR [Concomitant]
     Dosage: DAILY DOSE 10 IU
     Dates: start: 20140422
  12. LEVEMIR [Concomitant]
     Dosage: DAILY DOSE 12 IU
     Dates: start: 20140529
  13. NEBILET [Concomitant]
     Dosage: DAILY DOSE 1 TABLET
     Dates: start: 20140415, end: 20140527
  14. KALIMATE [Concomitant]
     Dosage: DAILY DOSE 1 PACK
     Dates: start: 20140218, end: 20140414
  15. KALIMATE [Concomitant]
     Dosage: DAILY DOSE 10 PACK
     Dates: start: 20140415, end: 20140415
  16. KALIMATE [Concomitant]
     Dosage: DAILY DOSE 1 PACK
     Dates: start: 20140423, end: 20140504
  17. LASIX [Concomitant]
     Dosage: DAILY DOSE 20 MG
     Dates: start: 20130523, end: 20140428
  18. NESP [Concomitant]
     Dosage: DAILY DOSE 1 ML
     Dates: start: 20140318, end: 20140421
  19. NESP [Concomitant]
     Dosage: DAILY DOSE 1 ML
     Dates: start: 20140520, end: 20140617
  20. DUPHALAC [LACTULOSE] [Concomitant]
     Dosage: 2 PACK, DAILY
     Dates: start: 20131217, end: 20140513
  21. DUPHALAC [LACTULOSE] [Concomitant]
     Dosage: 3 PACK
     Dates: start: 20140528, end: 20140528
  22. DUPHALAC [LACTULOSE] [Concomitant]
     Dosage: DAILY DOSE 60 MG
     Dates: start: 20140602, end: 20140602
  23. ERYTHROPOIETIN [Concomitant]
     Dosage: 5000 IU, DAILY
     Dates: start: 20140508, end: 20140508
  24. HUMALOG [Concomitant]
     Dosage: UNK
     Dates: start: 20140528, end: 20140528
  25. HUMALOG [Concomitant]
     Dosage: DAILY DOSE 10 IU
     Dates: start: 20140529, end: 20140531

REACTIONS (2)
  - Hyperkalaemia [Recovered/Resolved]
  - General physical health deterioration [Recovered/Resolved]
